FAERS Safety Report 8263696-2 (Version None)
Quarter: 2012Q2

REPORT INFORMATION
  Report Type: 
  Country: None (occurrence: None)
  Receive Date: 20120405
  Receipt Date: 20120322
  Transmission Date: 20120825
  Serious: Yes (Hospitalization)
  Sender: FDA-Public Use
  Company Number: CA-ROCHE-1031606

PATIENT
  Sex: Male

DRUGS (13)
  1. RANIBIZUMAB [Suspect]
     Indication: DIABETIC RETINAL OEDEMA
     Route: 050
     Dates: start: 20111207, end: 20111207
  2. RAMIPRIL [Concomitant]
     Dates: start: 19900101
  3. FLOMAX [Concomitant]
     Dates: start: 20020101
  4. GLUCOBAY [Concomitant]
     Dates: start: 20000101
  5. GLYBURIDE [Concomitant]
     Dates: start: 20000101
  6. FUROSEMIDE [Concomitant]
     Dates: start: 19900101
  7. PLAVIX [Concomitant]
     Dates: start: 19900101
  8. METFORMIN HCL [Concomitant]
     Dates: start: 20000101
  9. JANUVIA [Concomitant]
  10. METOPROLOL SUCCINATE [Concomitant]
     Dates: start: 19900101
  11. ASPIRIN [Concomitant]
     Dates: start: 19900101
  12. PROCAL [Concomitant]
     Dates: start: 20060101
  13. LIPITOR [Concomitant]
     Dates: start: 19900101

REACTIONS (3)
  - HYPOKALAEMIA [None]
  - INTESTINAL OBSTRUCTION [None]
  - COLITIS ISCHAEMIC [None]
